FAERS Safety Report 8814225 (Version 1)
Quarter: 2012Q4

REPORT INFORMATION
  Report Type: 
  Country: US (occurrence: US)
  Receive Date: 20120928
  Receipt Date: 20120928
  Transmission Date: 20130627
  Serious: Yes (Hospitalization)
  Sender: FDA-Public Use
  Company Number: US-BAYER-2012-099533

PATIENT
  Age: 40 Year
  Sex: Female

DRUGS (6)
  1. OCELLA [Suspect]
  2. YASMIN [Suspect]
     Indication: POLYCYSTIC OVARIES
  3. LEVOTHYROXINE [Concomitant]
     Indication: HYPOTHYROIDISM
     Dosage: 175 ?g, daily
  4. VITAMIN C [Concomitant]
  5. ZOFRAN [Concomitant]
  6. ROCEPHIN [Concomitant]
     Indication: URINARY TRACT INFECTION

REACTIONS (1)
  - Pulmonary embolism [None]
